FAERS Safety Report 20038086 (Version 1)
Quarter: 2021Q4

REPORT INFORMATION
  Report Type: Other
  Country: IT (occurrence: IT)
  Receive Date: 20211105
  Receipt Date: 20211105
  Transmission Date: 20220304
  Serious: Yes (Hospitalization)
  Sender: FDA-Public Use
  Company Number: None

PATIENT
  Age: 48 Year
  Sex: Male

DRUGS (1)
  1. CLONAZEPAM [Suspect]
     Active Substance: CLONAZEPAM
     Indication: Drug abuse
     Dosage: DATE OF LAST ADMINISTRATION: 16/SEP/2021
     Route: 048
     Dates: start: 20210916

REACTIONS (2)
  - Loss of consciousness [Unknown]
  - Drug abuse [Unknown]

NARRATIVE: CASE EVENT DATE: 20210916
